FAERS Safety Report 4874365-0 (Version None)
Quarter: 2006Q1

REPORT INFORMATION
  Report Type: 
  Country: None (occurrence: None)
  Receive Date: 20060106
  Receipt Date: 20051228
  Transmission Date: 20060701
  Serious: Yes (Life-Threatening, Hospitalization)
  Sender: FDA-Public Use
  Company Number: MX-BRISTOL-MYERS SQUIBB COMPANY-13236989

PATIENT
  Age: 50 Year
  Sex: Female

DRUGS (3)
  1. CETUXIMAB [Suspect]
     Indication: NON-SMALL CELL LUNG CANCER
     Route: 041
     Dates: start: 20051102
  2. CISPLATIN [Suspect]
     Indication: NON-SMALL CELL LUNG CANCER
     Route: 042
     Dates: start: 20051102
  3. VINORELBINE TARTRATE [Suspect]
     Indication: NON-SMALL CELL LUNG CANCER
     Route: 042
     Dates: start: 20051102

REACTIONS (2)
  - NEUTROPENIA [None]
  - PNEUMONIA [None]
